FAERS Safety Report 14721710 (Version 3)
Quarter: 2020Q1

REPORT INFORMATION
  Report Type: Report from Study
  Country: BE (occurrence: BE)
  Receive Date: 20180405
  Receipt Date: 20200122
  Transmission Date: 20200409
  Serious: Yes (Hospitalization, Other)
  Sender: FDA-Public Use
  Company Number: BE-MYLANLABS-2018M1021181

PATIENT
  Age: 73 Year
  Sex: Female
  Weight: 75 kg

DRUGS (62)
  1. PACLITAXEL. [Suspect]
     Active Substance: PACLITAXEL
     Indication: OVARIAN CANCER
     Dosage: 60 MG/M2, QW
     Route: 042
     Dates: start: 20160609
  2. IMODIUM [Concomitant]
     Active Substance: LOPERAMIDE HYDROCHLORIDE
     Indication: DIARRHOEA
     Dosage: UNK
     Route: 065
     Dates: start: 20160712, end: 20161110
  3. POTASSIUM CHLORIDE. [Concomitant]
     Active Substance: POTASSIUM CHLORIDE
     Dosage: UNK
     Route: 065
     Dates: start: 20160717, end: 20160717
  4. OPIUM                              /00036301/ [Concomitant]
     Active Substance: OPIUM
     Indication: DIARRHOEA
     Dosage: UNK
     Route: 065
     Dates: start: 20160720, end: 20160723
  5. ZYPREXA [Concomitant]
     Active Substance: OLANZAPINE
     Indication: ANXIETY
     Dosage: UNK
     Route: 065
     Dates: start: 20161106
  6. ZYPREXA [Concomitant]
     Active Substance: OLANZAPINE
     Indication: NAUSEA
  7. ZOLPIDEM [Concomitant]
     Active Substance: ZOLPIDEM TARTRATE
     Indication: PRODUCT USED FOR UNKNOWN INDICATION
     Dosage: UNK
     Route: 065
     Dates: start: 2004
  8. SIMVASTATIN. [Suspect]
     Active Substance: SIMVASTATIN
     Dosage: 944 MG, 3XW
     Route: 042
     Dates: start: 20160725
  9. INNOHEP [Concomitant]
     Active Substance: TINZAPARIN SODIUM
     Dosage: UNK
     Route: 065
     Dates: start: 20160726, end: 20160928
  10. AACIDEXAM                          /00016001/ [Concomitant]
     Dosage: UNK
     Route: 065
     Dates: start: 20161001, end: 20161001
  11. POTASSIUM CHLORIDE. [Concomitant]
     Active Substance: POTASSIUM CHLORIDE
     Indication: HYPOKALAEMIA
     Dosage: UNK
     Route: 065
     Dates: start: 20160930, end: 20160930
  12. REMERGON [Concomitant]
     Active Substance: MIRTAZAPINE
     Indication: NAUSEA
     Dosage: UNK
     Route: 065
     Dates: start: 20170602
  13. MORPHINE [Concomitant]
     Active Substance: MORPHINE
     Indication: PRODUCT USED FOR UNKNOWN INDICATION
     Dosage: UNK
     Route: 065
     Dates: start: 20161001, end: 20161001
  14. PACLITAXEL. [Suspect]
     Active Substance: PACLITAXEL
     Dosage: 60 MG/M2, QW
     Route: 042
     Dates: start: 20160623
  15. CORDARONE [Concomitant]
     Active Substance: AMIODARONE HYDROCHLORIDE
     Indication: PRODUCT USED FOR UNKNOWN INDICATION
     Dosage: UNK
     Route: 065
     Dates: start: 2013, end: 20160711
  16. LORMETAZEPAM [Concomitant]
     Active Substance: LORMETAZEPAM
     Indication: PRODUCT USED FOR UNKNOWN INDICATION
     Dosage: UNK
     Route: 065
     Dates: start: 20160720, end: 20160720
  17. AACIDEXAM                          /00016001/ [Concomitant]
     Dosage: UNK
     Route: 065
     Dates: start: 20160720, end: 20160722
  18. ULTRA K [Concomitant]
     Indication: HYPOKALAEMIA
     Dosage: UNK
     Route: 065
     Dates: start: 20160704, end: 20160707
  19. ASAFLOW [Concomitant]
     Active Substance: ASPIRIN
     Indication: PRODUCT USED FOR UNKNOWN INDICATION
     Dosage: UNK
     Route: 065
     Dates: start: 2011, end: 20160628
  20. PANTOMED                           /01263204/ [Concomitant]
     Active Substance: PANTOPRAZOLE SODIUM
     Indication: NAUSEA
     Dosage: UNK
     Route: 065
     Dates: start: 20160709
  21. SIMVASTATIN. [Suspect]
     Active Substance: SIMVASTATIN
     Indication: OVARIAN CANCER
     Dosage: 1125 MG, 3XW
     Route: 042
     Dates: start: 20160609
  22. SIMVASTATIN. [Suspect]
     Active Substance: SIMVASTATIN
     Dosage: 1005 MG, 3XW
     Route: 042
     Dates: start: 20160705
  23. CARBOPLATIN. [Suspect]
     Active Substance: CARBOPLATIN
     Dosage: 2,7 AUC
     Route: 042
     Dates: start: 20160623
  24. INNOHEP [Concomitant]
     Active Substance: TINZAPARIN SODIUM
     Indication: PRODUCT USED FOR UNKNOWN INDICATION
     Dosage: UNK
     Route: 065
     Dates: start: 20160608, end: 20160626
  25. POTASSIUM CHLORIDE. [Concomitant]
     Active Substance: POTASSIUM CHLORIDE
     Dosage: UNK
     Route: 065
     Dates: start: 20160719, end: 20160721
  26. BISOPROLOL [Concomitant]
     Active Substance: BISOPROLOL
     Indication: PRODUCT USED FOR UNKNOWN INDICATION
     Dosage: UNK
     Route: 065
     Dates: start: 2011
  27. MOVIPREP [Concomitant]
     Active Substance: ASCORBIC ACID\POLYETHYLENE GLYCOL 3350\POTASSIUM CHLORIDE\SODIUM ASCORBATE\SODIUM CHLORIDE\SODIUM SULFATE
     Dosage: UNK
     Route: 065
     Dates: start: 20160929, end: 20160929
  28. DAKTARIN                           /00310801/ [Concomitant]
     Active Substance: MICONAZOLE NITRATE
     Indication: RASH
     Dosage: UNK
     Route: 065
     Dates: start: 20160721, end: 20160721
  29. PARACETAMOL FRESENIUS [Concomitant]
     Indication: DIARRHOEA
     Dosage: UNK
     Route: 065
     Dates: start: 20160718, end: 20160728
  30. PACLITAXEL. [Suspect]
     Active Substance: PACLITAXEL
     Dosage: 60 MG/M2, QW LAST DOSE :12/JUL/2016
     Route: 042
     Dates: start: 20160705
  31. BEVACIZUMAB. [Suspect]
     Active Substance: BEVACIZUMAB
     Dosage: 1005 MILLIGRAM, Q3W
     Route: 042
     Dates: start: 20160705
  32. BEVACIZUMAB. [Suspect]
     Active Substance: BEVACIZUMAB
     Dosage: 944 MILLIGRAM, Q3W
     Route: 042
     Dates: start: 20160725
  33. DEXAMETHASONE. [Concomitant]
     Active Substance: DEXAMETHASONE
     Indication: NAUSEA
     Dosage: UNK
     Route: 065
     Dates: start: 20160709, end: 20160710
  34. AACIDEXAM                          /00016001/ [Concomitant]
     Indication: NAUSEA
     Dosage: UNK
     Route: 065
     Dates: start: 20160701, end: 20160704
  35. PIPERACILLIN/TAZOBACTAM [Concomitant]
     Active Substance: PIPERACILLIN SODIUM\TAZOBACTAM SODIUM
     Indication: DIARRHOEA
     Dosage: UNK
     Route: 065
     Dates: start: 20160717, end: 20160721
  36. ONDANSETRON BRAUN [Concomitant]
     Indication: PRODUCT USED FOR UNKNOWN INDICATION
     Dosage: UNK
     Route: 065
     Dates: start: 20160930, end: 20161002
  37. BLOOD CELLS, PACKED HUMAN [Concomitant]
     Active Substance: HUMAN RED BLOOD CELL
     Indication: ANAEMIA
     Dosage: UNK
     Route: 065
     Dates: start: 20160718, end: 20160718
  38. TAVANIC [Concomitant]
     Active Substance: LEVOFLOXACIN
     Indication: DIARRHOEA
     Dosage: UNK
     Route: 065
     Dates: start: 20160721, end: 20160723
  39. PACLITAXEL. [Suspect]
     Active Substance: PACLITAXEL
     Dosage: 60 MG/M2, QW
     Route: 042
     Dates: start: 20160726
  40. BEVACIZUMAB. [Suspect]
     Active Substance: BEVACIZUMAB
     Indication: OVARIAN CANCER
     Dosage: 1125 MILLIGRAM, Q3W
     Route: 042
     Dates: start: 20160609
  41. INNOHEP [Concomitant]
     Active Substance: TINZAPARIN SODIUM
     Dosage: UNK
     Route: 065
     Dates: start: 20160629, end: 20160716
  42. NEUPOGEN [Concomitant]
     Active Substance: FILGRASTIM
     Indication: NEUTROPENIA
     Dosage: UNK
     Route: 065
     Dates: start: 20160717, end: 20160721
  43. TOTALIP [Concomitant]
     Active Substance: ATORVASTATIN
     Indication: PRODUCT USED FOR UNKNOWN INDICATION
     Dosage: UNK
     Route: 065
     Dates: start: 2004, end: 20170518
  44. ONDANSETRON [Concomitant]
     Active Substance: ONDANSETRON
     Indication: NAUSEA
     Dosage: UNK
     Route: 065
     Dates: start: 20160724, end: 20160816
  45. VASEXTEN [Concomitant]
     Active Substance: BARNIDIPINE HYDROCHLORIDE
     Indication: HYPERTENSION
     Dosage: UNK
     Route: 065
     Dates: start: 201705
  46. CARBOPLATIN. [Suspect]
     Active Substance: CARBOPLATIN
     Indication: OVARIAN CANCER
     Dosage: 2,7 AUC
     Route: 042
     Dates: start: 20160609
  47. CARBOPLATIN. [Suspect]
     Active Substance: CARBOPLATIN
     Dosage: 2,7 AUC; LAST DOSE :12/JUL/2016
     Route: 042
     Dates: start: 20160705
  48. CARBOPLATIN. [Suspect]
     Active Substance: CARBOPLATIN
     Dosage: 2 AUC
     Route: 042
     Dates: start: 20160726
  49. DAFALGAN [Concomitant]
     Active Substance: ACETAMINOPHEN
     Indication: PRODUCT USED FOR UNKNOWN INDICATION
     Dosage: UNK
     Route: 065
     Dates: start: 2016, end: 20170213
  50. RAMIPRIL. [Concomitant]
     Active Substance: RAMIPRIL
     Indication: HYPERTENSION
     Dosage: UNK
     Route: 065
     Dates: start: 20170519
  51. CONTRAMAL [Concomitant]
     Active Substance: TRAMADOL HYDROCHLORIDE
     Indication: ABDOMINAL PAIN
     Dosage: UNK
     Route: 065
     Dates: start: 20170602
  52. XANAX [Concomitant]
     Active Substance: ALPRAZOLAM
     Indication: NAUSEA
     Dosage: UNK
     Route: 065
     Dates: start: 20160708
  53. INNOHEP [Concomitant]
     Active Substance: TINZAPARIN SODIUM
     Dosage: UNK
     Route: 065
     Dates: start: 20160929, end: 20161231
  54. FLAGYL [Concomitant]
     Active Substance: METRONIDAZOLE\METRONIDAZOLE HYDROCHLORIDE
     Indication: PRODUCT USED FOR UNKNOWN INDICATION
     Dosage: UNK
     Route: 065
     Dates: start: 20160930, end: 20160930
  55. TEMESTA                            /00273201/ [Concomitant]
     Active Substance: LORAZEPAM
     Indication: ANXIETY
     Dosage: UNK
     Route: 065
     Dates: start: 20160704, end: 20160704
  56. IMODIUM [Concomitant]
     Active Substance: LOPERAMIDE HYDROCHLORIDE
     Dosage: UNK
     Route: 065
     Dates: start: 20160701, end: 20160701
  57. ZOFRAN [Concomitant]
     Active Substance: ONDANSETRON HYDROCHLORIDE
     Indication: NAUSEA
     Dosage: UNK
     Route: 065
     Dates: start: 20160712, end: 20160723
  58. ZOFRAN [Concomitant]
     Active Substance: ONDANSETRON HYDROCHLORIDE
     Dosage: UNK
     Route: 065
     Dates: start: 20160701, end: 20160704
  59. PLASMALYTE A [Concomitant]
     Indication: PRODUCT USED FOR UNKNOWN INDICATION
     Dosage: UNK
     Route: 065
     Dates: start: 20160929, end: 20160930
  60. CEFAZOLINE                         /00288501/ [Concomitant]
     Active Substance: CEFAZOLIN
     Indication: PRODUCT USED FOR UNKNOWN INDICATION
     Dosage: UNK
     Route: 065
     Dates: start: 20160930, end: 20160930
  61. PARACETAMOL [Concomitant]
     Active Substance: ACETAMINOPHEN
     Indication: PRODUCT USED FOR UNKNOWN INDICATION
     Dosage: UNK
     Route: 065
     Dates: start: 20170315
  62. BURINEX [Concomitant]
     Active Substance: BUMETANIDE
     Indication: OEDEMA PERIPHERAL
     Dosage: UNK
     Route: 065
     Dates: start: 20170609

REACTIONS (33)
  - Stomatitis [Recovered/Resolved]
  - Faecaloma [Recovered/Resolved]
  - Anxiety [Not Recovered/Not Resolved]
  - Dizziness [Recovered/Resolved]
  - Decreased appetite [Recovered/Resolved]
  - Depressed mood [Not Recovered/Not Resolved]
  - Dry mouth [Recovered/Resolved]
  - Thrombocytopenia [Recovered/Resolved]
  - Urosepsis [Recovered/Resolved]
  - Rash pruritic [Recovered/Resolved]
  - Proteinuria [Not Recovered/Not Resolved]
  - Oedema peripheral [Not Recovered/Not Resolved]
  - Abdominal pain upper [Recovered/Resolved]
  - Epistaxis [Recovered/Resolved]
  - Anaemia [Recovered/Resolved]
  - Constipation [Not Recovered/Not Resolved]
  - Hypokalaemia [Recovered/Resolved]
  - Fatigue [Not Recovered/Not Resolved]
  - Diarrhoea [Recovered/Resolved]
  - Abdominal pain [Not Recovered/Not Resolved]
  - Peripheral sensory neuropathy [Not Recovered/Not Resolved]
  - Febrile neutropenia [Recovered/Resolved]
  - Dry skin [Recovered/Resolved]
  - Weight decreased [Recovered/Resolved]
  - Somnolence [Not Recovered/Not Resolved]
  - Diarrhoea haemorrhagic [Recovered/Resolved]
  - Electrocardiogram QT prolonged [Not Recovered/Not Resolved]
  - Dehydration [Recovered/Resolved]
  - Dyspepsia [Recovered/Resolved]
  - Asthenia [Recovered/Resolved]
  - Nausea [Not Recovered/Not Resolved]
  - Hypertension [Not Recovered/Not Resolved]
  - Neutropenia [Recovered/Resolved]

NARRATIVE: CASE EVENT DATE: 20160616
